FAERS Safety Report 24396816 (Version 3)
Quarter: 2024Q4

REPORT INFORMATION
  Report Type: Report from Study
  Country: US (occurrence: US)
  Receive Date: 20241004
  Receipt Date: 20241014
  Transmission Date: 20250114
  Serious: Yes (Hospitalization, Other)
  Sender: JOHNSON AND JOHNSON
  Company Number: US-JNJFOC-20240979340

PATIENT

DRUGS (2)
  1. STELARA [Suspect]
     Active Substance: USTEKINUMAB
     Indication: Product used for unknown indication
     Route: 058
  2. STELARA [Suspect]
     Active Substance: USTEKINUMAB

REACTIONS (6)
  - Internal haemorrhage [Unknown]
  - Hospitalisation [Unknown]
  - Liver transplant rejection [Unknown]
  - Colitis ulcerative [Unknown]
  - Needle issue [Unknown]
  - Incorrect dose administered [Unknown]
